FAERS Safety Report 24646813 (Version 1)
Quarter: 2024Q4

REPORT INFORMATION
  Report Type: Spontaneous
  Country: BR (occurrence: BR)
  Receive Date: 20241121
  Receipt Date: 20241121
  Transmission Date: 20250115
  Serious: Yes (Death, Hospitalization, Other)
  Sender: PFIZER
  Company Number: BR-PFIZER INC-PV202400148906

PATIENT
  Age: 26 Year
  Sex: Female

DRUGS (9)
  1. LINEZOLID [Suspect]
     Active Substance: LINEZOLID
     Indication: Pulmonary tuberculosis
     Dosage: UNK
     Dates: start: 202202
  2. LINEZOLID [Suspect]
     Active Substance: LINEZOLID
     Dosage: UNK
     Route: 042
     Dates: start: 202208
  3. LEVOFLOXACIN [Suspect]
     Active Substance: LEVOFLOXACIN
     Indication: Pulmonary tuberculosis
     Dosage: UNK
     Dates: start: 202202
  4. LEVOFLOXACIN [Suspect]
     Active Substance: LEVOFLOXACIN
     Dosage: UNK
     Route: 042
     Dates: start: 202208
  5. TERIZIDONE [Suspect]
     Active Substance: TERIZIDONE
     Indication: Pulmonary tuberculosis
     Dosage: UNK
     Dates: start: 202202
  6. BEDAQUILINE [Suspect]
     Active Substance: BEDAQUILINE
     Indication: Pulmonary tuberculosis
     Dosage: UNK
     Dates: start: 202202
  7. MEROPENEM [Concomitant]
     Active Substance: MEROPENEM
     Indication: Pulmonary tuberculosis
     Dosage: UNK
     Route: 042
     Dates: start: 202208
  8. AMIKACIN [Concomitant]
     Active Substance: AMIKACIN
     Indication: Pulmonary tuberculosis
     Dosage: UNK
     Route: 042
     Dates: start: 202208
  9. AMOXICILLIN\CLAVULANIC ACID [Concomitant]
     Active Substance: AMOXICILLIN\CLAVULANIC ACID
     Indication: Pulmonary tuberculosis
     Dosage: UNK
     Route: 042
     Dates: start: 202208

REACTIONS (2)
  - Drug ineffective for unapproved indication [Fatal]
  - Off label use [Fatal]

NARRATIVE: CASE EVENT DATE: 20220201
